FAERS Safety Report 15894456 (Version 1)
Quarter: 2019Q1

REPORT INFORMATION
  Report Type: Spontaneous
  Country: US (occurrence: US)
  Receive Date: 20190131
  Receipt Date: 20190131
  Transmission Date: 20190417
  Serious: Yes (Hospitalization)
  Sender: FDA-Public Use
  Company Number: None

PATIENT
  Age: 76 Year
  Sex: Male

DRUGS (16)
  1. TAMSULOSIN [Concomitant]
     Active Substance: TAMSULOSIN
  2. LEVOFLOXACIN. [Concomitant]
     Active Substance: LEVOFLOXACIN
  3. LISINOPRIL. [Concomitant]
     Active Substance: LISINOPRIL
  4. PREVIDENT [Concomitant]
     Active Substance: SODIUM FLUORIDE
  5. BUPROPN [Concomitant]
  6. ESCITALOPRAM [Concomitant]
     Active Substance: ESCITALOPRAM OXALATE
  7. FINASTERIDE. [Concomitant]
     Active Substance: FINASTERIDE
  8. LEVOTHYROXINE. [Concomitant]
     Active Substance: LEVOTHYROXINE
  9. RISPERIDONE. [Concomitant]
     Active Substance: RISPERIDONE
  10. OLANZAPINE. [Concomitant]
     Active Substance: OLANZAPINE
  11. MIRTZAPINE [Concomitant]
  12. DESVENLAFAX [Concomitant]
  13. GABAPENTIN. [Concomitant]
     Active Substance: GABAPENTIN
  14. ESBRIET [Suspect]
     Active Substance: PIRFENIDONE
     Indication: INTERSTITIAL LUNG DISEASE
     Route: 048
     Dates: start: 20181121
  15. ALPRAZOLAM. [Concomitant]
     Active Substance: ALPRAZOLAM
  16. PREDNSIONE [Concomitant]

REACTIONS (3)
  - Therapy cessation [None]
  - Fall [None]
  - Eye contusion [None]

NARRATIVE: CASE EVENT DATE: 20190125
